FAERS Safety Report 8170187-6 (Version None)
Quarter: 2012Q1

REPORT INFORMATION
  Report Type: 
  Country: None (occurrence: None)
  Receive Date: 20120228
  Receipt Date: 20120222
  Transmission Date: 20120608
  Serious: Yes (Hospitalization)
  Sender: FDA-Public Use
  Company Number: PHEH2011US05881

PATIENT
  Sex: Female
  Weight: 60 kg

DRUGS (2)
  1. EXJADE [Suspect]
     Indication: IRON OVERLOAD
     Dosage: 1500 MG THREE TABLETS ONCE DAILY
     Route: 048
     Dates: start: 20080326, end: 20110410
  2. EXJADE [Suspect]
     Indication: SICKLE CELL ANAEMIA
     Dosage: 1500 MG  THREE TABLETS ONCE DAILY
     Route: 048
     Dates: start: 20120106

REACTIONS (3)
  - THROMBOSIS [None]
  - SERUM FERRITIN INCREASED [None]
  - DEVICE RELATED INFECTION [None]
